FAERS Safety Report 18059553 (Version 7)
Quarter: 2021Q2

REPORT INFORMATION
  Report Type: Spontaneous
  Country: US (occurrence: US)
  Receive Date: 20200723
  Receipt Date: 20210518
  Transmission Date: 20210717
  Serious: Yes (Other)
  Sender: FDA-Public Use
  Company Number: US-PFIZER INC-2020281259

PATIENT
  Age: 84 Year
  Sex: Female

DRUGS (5)
  1. INLYTA [Suspect]
     Active Substance: AXITINIB
     Dosage: UNK
     Dates: start: 20201102
  2. INLYTA [Suspect]
     Active Substance: AXITINIB
     Indication: RENAL CANCER
     Dosage: 1 MG
     Dates: start: 20200717, end: 2020
  3. INLYTA [Suspect]
     Active Substance: AXITINIB
     Dosage: UNK, 1X/DAY
     Dates: start: 20210317
  4. INLYTA [Suspect]
     Active Substance: AXITINIB
     Dosage: 1 MG
     Dates: start: 20210320
  5. INLYTA [Suspect]
     Active Substance: AXITINIB
     Dosage: 3 MG, 2X/DAY
     Dates: start: 2020

REACTIONS (13)
  - Ageusia [Recovered/Resolved]
  - Glossodynia [Recovered/Resolved]
  - Stomatitis [Recovered/Resolved]
  - Neoplasm progression [Unknown]
  - Constipation [Recovered/Resolved]
  - Emotional disorder [Recovered/Resolved]
  - Confusional state [Recovered/Resolved]
  - Fatigue [Recovered/Resolved]
  - Dysphonia [Recovered/Resolved]
  - Feeling jittery [Recovered/Resolved]
  - Syncope [Recovered/Resolved]
  - Fall [Recovered/Resolved]
  - Off label use [Unknown]

NARRATIVE: CASE EVENT DATE: 2020
